FAERS Safety Report 21783909 (Version 1)
Quarter: 2022Q4

REPORT INFORMATION
  Report Type: Spontaneous
  Country: IN (occurrence: IN)
  Receive Date: 20221227
  Receipt Date: 20221227
  Transmission Date: 20230112
  Serious: Yes (Life-Threatening, Hospitalization)
  Sender: FDA-Public Use
  Company Number: None

PATIENT
  Age: 31 Year
  Sex: Male
  Weight: 79.3 kg

DRUGS (9)
  1. REMDESIVIR [Suspect]
     Active Substance: REMDESIVIR
     Indication: COVID-19 pneumonia
     Dosage: 200 MILLIGRAM; LOADING DOSE
     Route: 065
     Dates: start: 2021
  2. REMDESIVIR [Suspect]
     Active Substance: REMDESIVIR
     Dosage: 100 MILLIGRAM, QD
     Route: 065
     Dates: start: 2021
  3. DEXAMETHASONE [Suspect]
     Active Substance: DEXAMETHASONE
     Indication: COVID-19 pneumonia
     Dosage: 8 MILLIGRAM, BID
     Route: 048
     Dates: start: 2021
  4. AMPHOTERICIN B [Suspect]
     Active Substance: AMPHOTERICIN B
     Indication: Kidney infection
     Dosage: 50 MILLIGRAM; INITIAL
     Route: 042
  5. AMPHOTERICIN B [Suspect]
     Active Substance: AMPHOTERICIN B
     Indication: Mucormycosis
     Dosage: 100 MILLIGRAM, QD; 1.5 MG/ KG- OVER 4 HOURS DAILY
     Route: 042
  6. AMPHOTERICIN B [Suspect]
     Active Substance: AMPHOTERICIN B
     Dosage: 150 MILLIGRAM, 3XW; 3 TIMES A WEEK
     Route: 042
  7. TOCILIZUMAB [Suspect]
     Active Substance: TOCILIZUMAB
     Indication: COVID-19 pneumonia
     Dosage: 400 MILLIGRAM, ONCE; SINGLE DOSE-5.3 MG/KG; INTRAVENOUS (NOT SPECIFIED)
     Route: 042
     Dates: start: 2021, end: 2021
  8. POSACONAZOLE [Concomitant]
     Active Substance: POSACONAZOLE
     Indication: Kidney infection
     Dosage: 300 MILLIGRAM, QD; DELAYED-RELEASE CAPSULE
     Route: 065
  9. POSACONAZOLE [Concomitant]
     Active Substance: POSACONAZOLE
     Indication: Mucormycosis

REACTIONS (8)
  - Kidney infection [Recovering/Resolving]
  - Mucormycosis [Recovering/Resolving]
  - Drug ineffective [Unknown]
  - Off label use [Recovering/Resolving]
  - Cardiomyopathy [Recovered/Resolved]
  - Arrhythmia [Recovered/Resolved]
  - Pulmonary oedema [Unknown]
  - Abscess limb [Unknown]

NARRATIVE: CASE EVENT DATE: 20210101
